FAERS Safety Report 10364966 (Version 7)
Quarter: 2017Q1

REPORT INFORMATION
  Report Type: Spontaneous
  Country: US (occurrence: US)
  Receive Date: 20140806
  Receipt Date: 20170109
  Transmission Date: 20170428
  Serious: Yes (Other)
  Sender: FDA-Public Use
  Company Number: US-GLAXOSMITHKLINE-A1045252A

PATIENT
  Age: 65 Year
  Sex: Female

DRUGS (12)
  1. ADVAIR HFA [Suspect]
     Active Substance: FLUTICASONE PROPIONATE\SALMETEROL XINAFOATE
     Dosage: 2 PUFF(S), BID
  2. MONTELUKAST [Concomitant]
     Active Substance: MONTELUKAST SODIUM
  3. L-THYROXINE [Concomitant]
     Active Substance: LEVOTHYROXINE
  4. ADVAIR HFA [Suspect]
     Active Substance: FLUTICASONE PROPIONATE\SALMETEROL XINAFOATE
     Indication: INTERSTITIAL LUNG DISEASE
     Dosage: 2 PUFF(S), BID
     Route: 055
     Dates: start: 2009
  5. MINOCIN [Concomitant]
     Active Substance: MINOCYCLINE HYDROCHLORIDE
  6. METHOTREXATE. [Concomitant]
     Active Substance: METHOTREXATE
  7. RANITIDINE. [Concomitant]
     Active Substance: RANITIDINE
  8. ADVAIR HFA [Suspect]
     Active Substance: FLUTICASONE PROPIONATE\SALMETEROL XINAFOATE
     Indication: ASTHMA
     Dosage: 2 PUFF(S), BID
     Route: 055
  9. VENTOLIN [Concomitant]
     Active Substance: ALBUTEROL SULFATE
  10. LORAZEPAM. [Concomitant]
     Active Substance: LORAZEPAM
  11. ADVAIR HFA [Suspect]
     Active Substance: FLUTICASONE PROPIONATE\SALMETEROL XINAFOATE
     Indication: LUNG DISORDER
     Dosage: 2 PUFF(S), BID
     Route: 055
     Dates: start: 2012
  12. VERAPAMIL [Concomitant]
     Active Substance: VERAPAMIL HYDROCHLORIDE

REACTIONS (15)
  - Dyspnoea [Not Recovered/Not Resolved]
  - Condition aggravated [Unknown]
  - Mitral valve calcification [Unknown]
  - Oropharyngeal pain [Not Recovered/Not Resolved]
  - Supraventricular tachycardia [Unknown]
  - Back pain [Unknown]
  - Muscle spasms [Unknown]
  - Palpitations [Unknown]
  - Dry mouth [Unknown]
  - Malaise [Not Recovered/Not Resolved]
  - Drug dose omission [Unknown]
  - Lung disorder [Unknown]
  - Cataract operation [Unknown]
  - Cataract [Unknown]
  - Product quality issue [Unknown]

NARRATIVE: CASE EVENT DATE: 2012
